FAERS Safety Report 19436412 (Version 4)
Quarter: 2021Q4

REPORT INFORMATION
  Report Type: Report from Study
  Country: US (occurrence: US)
  Receive Date: 20210618
  Receipt Date: 20211229
  Transmission Date: 20220303
  Serious: No
  Sender: FDA-Public Use
  Company Number: NVSC2021US129519

PATIENT
  Age: 11 Year
  Sex: Female
  Weight: 11.3 kg

DRUGS (4)
  1. ILARIS [Suspect]
     Active Substance: CANAKINUMAB
     Indication: Juvenile idiopathic arthritis
     Dosage: 150 MG, QW4 POSTERIOR ARM RIGHT
     Route: 058
     Dates: start: 20210206
  2. ILARIS [Suspect]
     Active Substance: CANAKINUMAB
     Dosage: 150 MG, Q4W
     Route: 058
     Dates: start: 20210503
  3. ILARIS [Suspect]
     Active Substance: CANAKINUMAB
     Dosage: 150 MG, Q4W
     Route: 058
     Dates: start: 20210831, end: 20210831
  4. ILARIS [Suspect]
     Active Substance: CANAKINUMAB
     Route: 058

REACTIONS (6)
  - Pruritus [Recovering/Resolving]
  - Swelling [Recovered/Resolved]
  - Contusion [Recovering/Resolving]
  - Local reaction [Recovered/Resolved]
  - Mass [Recovered/Resolved]
  - COVID-19 [Unknown]

NARRATIVE: CASE EVENT DATE: 20210630
